FAERS Safety Report 7123335-0 (Version None)
Quarter: 2010Q4

REPORT INFORMATION
  Report Type: 
  Country: None (occurrence: None)
  Receive Date: 20101125
  Receipt Date: 20101118
  Transmission Date: 20110411
  Serious: No
  Sender: FDA-Public Use
  Company Number: US-BIOGENIDEC-2010BI041033

PATIENT
  Age: 49 Year
  Sex: Female

DRUGS (3)
  1. TYSABRI [Suspect]
     Indication: MULTIPLE SCLEROSIS
     Route: 042
     Dates: start: 20101009
  2. TYSABRI [Suspect]
     Route: 042
     Dates: start: 20060906
  3. TYSABRI [Suspect]
     Route: 042
     Dates: end: 20040101

REACTIONS (2)
  - MOBILITY DECREASED [None]
  - MUSCULOSKELETAL DISORDER [None]
